FAERS Safety Report 12298978 (Version 2)
Quarter: 2016Q2

REPORT INFORMATION
  Report Type: Report from Study
  Country: BE (occurrence: BE)
  Receive Date: 20160425
  Receipt Date: 20160610
  Transmission Date: 20160815
  Serious: Yes (Hospitalization, Other)
  Sender: FDA-Public Use
  Company Number: BE-BRISTOL-MYERS SQUIBB COMPANY-BMS-2016-030418

PATIENT
  Age: 66 Year
  Sex: Male

DRUGS (1)
  1. OPDIVO [Suspect]
     Active Substance: NIVOLUMAB
     Indication: NON-SMALL CELL LUNG CANCER
     Dosage: 240 MG, Q2WK
     Route: 042
     Dates: start: 20160202, end: 20160202

REACTIONS (4)
  - Bronchial obstruction [Unknown]
  - Lung infection [Recovered/Resolved with Sequelae]
  - Pleural effusion [Unknown]
  - Aspiration pleural cavity [Unknown]

NARRATIVE: CASE EVENT DATE: 20160216
